FAERS Safety Report 18601902 (Version 2)
Quarter: 2020Q4

REPORT INFORMATION
  Report Type: Report from Study
  Country: DE (occurrence: DE)
  Receive Date: 20201210
  Receipt Date: 20201216
  Transmission Date: 20210114
  Serious: Yes (Life-Threatening)
  Sender: FDA-Public Use
  Company Number: NVSC2020DE328785

PATIENT
  Sex: Female
  Weight: 157 kg

DRUGS (5)
  1. EXEMESTANE. [Suspect]
     Active Substance: EXEMESTANE
     Indication: BREAST CANCER METASTATIC
     Dosage: 25 MG, QD
     Route: 048
     Dates: start: 20190412
  2. KISQALI [Suspect]
     Active Substance: RIBOCICLIB
     Indication: BREAST CANCER METASTATIC
     Dosage: 600 MG, QD SCHEMA 21 DAYS INTAKE, 7 DAYS PAUSE
     Route: 048
     Dates: start: 20190412, end: 20200126
  3. KISQALI [Suspect]
     Active Substance: RIBOCICLIB
     Dosage: 600 MG, QD SCHEMA 21 DAYS INTAKE, 7 DAYS PAUSE
     Route: 048
     Dates: start: 20200128, end: 20201123
  4. KISQALI [Suspect]
     Active Substance: RIBOCICLIB
     Dosage: 400 MG, QD
     Route: 048
     Dates: start: 20200127, end: 20200127
  5. KISQALI [Suspect]
     Active Substance: RIBOCICLIB
     Dosage: 400 MG, QD SCHEMA 21 DAYS INTAKE, 7 DAYS PAUS
     Route: 048
     Dates: start: 20201202

REACTIONS (1)
  - Lipase increased [Recovering/Resolving]

NARRATIVE: CASE EVENT DATE: 20200724
